FAERS Safety Report 23573352 (Version 1)
Quarter: 2024Q1

REPORT INFORMATION
  Report Type: Spontaneous
  Country: ES (occurrence: ES)
  Receive Date: 20240228
  Receipt Date: 20240228
  Transmission Date: 20240410
  Serious: Yes (Hospitalization)
  Sender: FDA-Public Use
  Company Number: ES-AEMPS-1486469

PATIENT
  Age: 47 Year
  Sex: Male

DRUGS (1)
  1. AMIODARONE [Suspect]
     Active Substance: AMIODARONE
     Indication: Atrial fibrillation
     Dosage: 200 MILLIGRAM, ONCE A DAY
     Route: 048
     Dates: start: 20240118, end: 20240201

REACTIONS (2)
  - Dyspnoea [Recovering/Resolving]
  - Upper respiratory tract irritation [Recovering/Resolving]

NARRATIVE: CASE EVENT DATE: 20240201
